FAERS Safety Report 12098707 (Version 2)
Quarter: 2017Q3

REPORT INFORMATION
  Report Type: Spontaneous
  Country: FR (occurrence: FR)
  Receive Date: 20160222
  Receipt Date: 20170926
  Transmission Date: 20171127
  Serious: Yes (Other)
  Sender: FDA-Public Use
  Company Number: FR-ACCORD-038045

PATIENT
  Age: 68 Year
  Sex: Female

DRUGS (1)
  1. GEMCITABINE/GEMCITABINE HYDROCHLORIDE [Suspect]
     Active Substance: GEMCITABINE\GEMCITABINE HYDROCHLORIDE
     Indication: ADENOCARCINOMA PANCREAS

REACTIONS (11)
  - Thrombocytopenia [Recovered/Resolved]
  - Oedema peripheral [Recovered/Resolved]
  - Haemolytic anaemia [Recovered/Resolved]
  - Hypertension [Recovered/Resolved]
  - Pericardial effusion [Recovering/Resolving]
  - Renal injury [Recovered/Resolved]
  - Thrombotic microangiopathy [Recovered/Resolved]
  - Normochromic normocytic anaemia [Recovered/Resolved]
  - Blood lactate dehydrogenase increased [Recovered/Resolved]
  - Drug ineffective [None]
  - Generalised oedema [None]
